FAERS Safety Report 8464905-7 (Version None)
Quarter: 2012Q2

REPORT INFORMATION
  Report Type: 
  Country: None (occurrence: None)
  Receive Date: 20120618
  Receipt Date: 20120531
  Transmission Date: 20120825
  Serious: Yes (Other)
  Sender: FDA-Public Use
  Company Number: COL_11303_2012

PATIENT
  Age: 22 Year
  Sex: Female

DRUGS (2)
  1. COLGATE [Suspect]
     Indication: DENTAL CARIES
     Dosage: ORAL
     Route: 048
  2. SODIUM MONOFLUOROPHOSPHATE [Suspect]
     Indication: PRODUCT USED FOR UNKNOWN INDICATION
     Dosage: ORAL
     Route: 048

REACTIONS (6)
  - PHARYNGEAL OEDEMA [None]
  - WHEEZING [None]
  - DYSPNOEA [None]
  - ANAPHYLACTIC REACTION [None]
  - COUGH [None]
  - LIP SWELLING [None]
